FAERS Safety Report 16290975 (Version 1)
Quarter: 2019Q2

REPORT INFORMATION
  Report Type: Spontaneous
  Country: SE (occurrence: SE)
  Receive Date: 20190509
  Receipt Date: 20190509
  Transmission Date: 20190711
  Serious: Yes (Other)
  Sender: FDA-Public Use
  Company Number: SE-PFIZER INC-2019195506

PATIENT
  Age: 17 Year
  Sex: Female

DRUGS (3)
  1. SERTRALINE HCL [Suspect]
     Active Substance: SERTRALINE HYDROCHLORIDE
     Indication: SOCIAL ANXIETY DISORDER
     Dosage: UNK
     Route: 048
     Dates: start: 20170227, end: 20180710
  2. MELATONIN AGB [Concomitant]
     Dosage: 10 MG, 1X/DAY
  3. SERTRALINE HCL [Suspect]
     Active Substance: SERTRALINE HYDROCHLORIDE
     Indication: DEPRESSION
     Dosage: 150 MG, 1X/DAY (50+100 MG AT 19 OCLOCK)
     Route: 048
     Dates: start: 20180711, end: 20190202

REACTIONS (7)
  - Mydriasis [Recovered/Resolved]
  - Cold sweat [Recovered/Resolved]
  - Presyncope [Recovered/Resolved]
  - Toxicity to various agents [Recovered/Resolved]
  - Vomiting [Recovered/Resolved]
  - Headache [Recovered/Resolved]
  - Nausea [Recovered/Resolved]

NARRATIVE: CASE EVENT DATE: 20190203
